FAERS Safety Report 4533341-8 (Version None)
Quarter: 2004Q4

REPORT INFORMATION
  Report Type: 
  Country: None (occurrence: None)
  Receive Date: 20041221
  Receipt Date: 20041210
  Transmission Date: 20050328
  Serious: Yes (Hospitalization)
  Sender: FDA-Public Use
  Company Number: PHEH2004US13221

PATIENT
  Age: 92 Year
  Sex: Female
  Weight: 61 kg

DRUGS (5)
  1. TRILEPTAL [Suspect]
     Indication: CONVULSION
     Dosage: 75 MG, BID
     Route: 048
     Dates: start: 20041118
  2. TRILEPTAL [Suspect]
     Dosage: 150 MG, BID
     Dates: start: 20041207, end: 20041209
  3. LEVOXYL [Concomitant]
     Dosage: 88 UG, QD
  4. ATACAND [Concomitant]
  5. AMLODIPINE BESYLATE [Concomitant]
     Dosage: 5 MG, QD

REACTIONS (3)
  - ASTHENIA [None]
  - ATRIOVENTRICULAR BLOCK COMPLETE [None]
  - NAUSEA [None]
